FAERS Safety Report 6459894-0 (Version None)
Quarter: 2009Q4

REPORT INFORMATION
  Report Type: 
  Country: None (occurrence: None)
  Receive Date: 20091129
  Receipt Date: 20091116
  Transmission Date: 20100525
  Serious: Yes (Other)
  Sender: FDA-Public Use
  Company Number: PHHY2009BR50800

PATIENT
  Age: 80 Year
  Sex: Male
  Weight: 70 kg

DRUGS (1)
  1. EXELON [Suspect]
     Indication: MEMORY IMPAIRMENT
     Dosage: 9 MG/5CM2/DAY
     Route: 062
     Dates: start: 20091001

REACTIONS (4)
  - DIZZINESS [None]
  - LABYRINTHITIS [None]
  - NAUSEA [None]
  - VOMITING [None]
